FAERS Safety Report 19384218 (Version 2)
Quarter: 2021Q3

REPORT INFORMATION
  Report Type: Spontaneous
  Country: IT (occurrence: IT)
  Receive Date: 20210608
  Receipt Date: 20210803
  Transmission Date: 20211014
  Serious: Yes (Other)
  Sender: FDA-Public Use
  Company Number: IT-LUPIN PHARMACEUTICALS INC.-2021-09097

PATIENT
  Sex: Female

DRUGS (18)
  1. URAPIDIL [Suspect]
     Active Substance: URAPIDIL
     Dosage: UNK, FOLLOWED BY A CONTINUOUS INFUSION AT A RATE OF 0.5
     Route: 064
  2. LABETALOL [Suspect]
     Active Substance: LABETALOL\LABETALOL HYDROCHLORIDE
     Dosage: UNK, AT A RATE OF 2 MG/MIN
     Route: 064
  3. INSULIN GLARGINE [Suspect]
     Active Substance: INSULIN GLARGINE
     Indication: GESTATIONAL DIABETES
     Dosage: UNK, INSULIN GLARGINE 15U AT 09.00 P.M.
     Route: 064
  4. URAPIDIL [Suspect]
     Active Substance: URAPIDIL
     Indication: HYPERTENSIVE CRISIS
     Dosage: 25 MILLIGRAM, INTRAVENOUS BOLUS OF 25 MG OVER 5 MIN
     Route: 064
  5. MAGNESIUM SULPHATE [Suspect]
     Active Substance: MAGNESIUM SULFATE
     Indication: ARRHYTHMIA PROPHYLAXIS
  6. SALINE [Suspect]
     Active Substance: SODIUM CHLORIDE
     Indication: VEHICLE SOLUTION USE
     Dosage: 250 MILLILITER, MAGNESIUM SULFATE 40 MEQ IN SODIUM CHLORIDE SOLUTION
     Route: 064
  7. NIFEDIPINE. [Suspect]
     Active Substance: NIFEDIPINE
     Indication: PHAEOCHROMOCYTOMA
     Dosage: 30 MILLIGRAM, QD
     Route: 064
  8. INSULIN LISPRO [Suspect]
     Active Substance: INSULIN LISPRO
     Indication: GESTATIONAL DIABETES
     Dosage: UNK, INSULIN LISPRO 6U AT 7.00 A.M
     Route: 064
  9. LABETALOL [Suspect]
     Active Substance: LABETALOL\LABETALOL HYDROCHLORIDE
     Indication: HYPERTENSIVE CRISIS
     Dosage: 20 MILLIGRAM, OVER 2 MIN
     Route: 064
  10. METOCLOPRAMIDE. [Suspect]
     Active Substance: METOCLOPRAMIDE
     Indication: PRODUCT USED FOR UNKNOWN INDICATION
     Dosage: 10 MILLIGRAM, QD
     Route: 064
  11. INSULIN LISPRO [Suspect]
     Active Substance: INSULIN LISPRO
     Dosage: UNK, INSULIN LISPRO 10U AT 12.00 A.M AND 10U AT 06.00 P.M.
     Route: 064
  12. MAGNESIUM SULPHATE [Suspect]
     Active Substance: MAGNESIUM SULFATE
     Indication: HYPERTENSIVE CRISIS
     Dosage: 40 MILLIEQUIVALENT, 40 MEQ IN SODIUM CHLORIDE SOLUTION 250 ML IN A 4?HOUR
     Route: 064
  13. NIFEDIPINE. [Suspect]
     Active Substance: NIFEDIPINE
     Indication: HYPERTENSION
     Dosage: 20 MILLIGRAM, QD
     Route: 064
  14. ATENOLOL. [Suspect]
     Active Substance: ATENOLOL
     Indication: PHAEOCHROMOCYTOMA
     Dosage: 12.5 MILLIGRAM, QD
     Route: 064
  15. METOCLOPRAMIDE. [Suspect]
     Active Substance: METOCLOPRAMIDE
     Dosage: 10 MILLIGRAM, BID
     Route: 064
  16. ALPHA?METHYLDOPA [Suspect]
     Active Substance: METHYLDOPA
     Indication: HYPERTENSION
     Dosage: 500 MILLIGRAM, TID
     Route: 064
  17. DOXAZOSIN [Suspect]
     Active Substance: DOXAZOSIN MESYLATE
     Indication: PHAEOCHROMOCYTOMA
     Dosage: 14 MILLIGRAM, QD
     Route: 064
  18. POTASSIUM CHLORIDE. [Suspect]
     Active Substance: POTASSIUM CHLORIDE
     Indication: ARRHYTHMIA PROPHYLAXIS
     Dosage: 40 MILLIEQUIVALENT, 40 MEQ IN SODIUM CHLORIDE SOLUTION 250 ML IN 6?HOUR
     Route: 064

REACTIONS (2)
  - Foetal exposure during pregnancy [Unknown]
  - Premature baby [Unknown]
